FAERS Safety Report 7594255-2 (Version None)
Quarter: 2011Q3

REPORT INFORMATION
  Report Type: 
  Country: None (occurrence: None)
  Receive Date: 20110706
  Receipt Date: 20110706
  Transmission Date: 20111222
  Serious: Yes (Other)
  Sender: FDA-Public Use
  Company Number: None

PATIENT
  Sex: Male
  Weight: 120.2 kg

DRUGS (1)
  1. PROPECIA [Suspect]
     Indication: ANDROGENETIC ALOPECIA
     Dates: start: 19950101, end: 20080101

REACTIONS (3)
  - DRUG INEFFECTIVE [None]
  - LIBIDO DECREASED [None]
  - ERECTILE DYSFUNCTION [None]
